FAERS Safety Report 4665018-2 (Version None)
Quarter: 2005Q2

REPORT INFORMATION
  Report Type: 
  Country: None (occurrence: None)
  Receive Date: 20050517
  Receipt Date: 20050429
  Transmission Date: 20051028
  Serious: Yes (Other)
  Sender: FDA-Public Use
  Company Number: GBS050517269

PATIENT
  Age: 58 Year
  Sex: Female

DRUGS (4)
  1. DULOXETINE HYDROCHLORIDE [Suspect]
     Indication: STRESS INCONTINENCE
     Dosage: 40 MG/2 DAY
     Dates: start: 20041112, end: 20041112
  2. THYROXINE (LEVOTHYROXINE SODIUM) [Concomitant]
  3. CO-CODAMOL [Concomitant]
  4. PREMARIN [Concomitant]

REACTIONS (4)
  - CHEST DISCOMFORT [None]
  - CHOKING SENSATION [None]
  - DIZZINESS [None]
  - NAUSEA [None]
